FAERS Safety Report 15082990 (Version 1)
Quarter: 2018Q2

REPORT INFORMATION
  Report Type: Spontaneous
  Country: JP (occurrence: JP)
  Receive Date: 20180628
  Receipt Date: 20180628
  Transmission Date: 20180711
  Serious: Yes (Hospitalization)
  Sender: FDA-Public Use
  Company Number: JP-JNJFOC-20180535243

PATIENT
  Age: 6 Decade
  Sex: Female

DRUGS (4)
  1. DOXORUBICIN HYDROCHLORIDE. [Suspect]
     Active Substance: DOXORUBICIN HYDROCHLORIDE
     Indication: PRODUCT USED FOR UNKNOWN INDICATION
     Dosage: 8 CYCLES; STRENGTH: 20 MG
     Route: 042
     Dates: start: 201803, end: 2018
  2. DOXORUBICIN HYDROCHLORIDE. [Suspect]
     Active Substance: DOXORUBICIN HYDROCHLORIDE
     Indication: PRODUCT USED FOR UNKNOWN INDICATION
     Dosage: 9 CYCLES; STRENGTH: 20 MG
     Route: 042
     Dates: start: 201805
  3. DOXORUBICIN HYDROCHLORIDE. [Suspect]
     Active Substance: DOXORUBICIN HYDROCHLORIDE
     Indication: PRODUCT USED FOR UNKNOWN INDICATION
     Dosage: STRENGTH: 20 MG
     Route: 042
  4. BEVACIZUMAB. [Concomitant]
     Active Substance: BEVACIZUMAB
     Route: 065
     Dates: start: 201803

REACTIONS (5)
  - Dyspnoea [Unknown]
  - Back pain [Unknown]
  - Infusion related reaction [Unknown]
  - Hypertension [Unknown]
  - Fracture [Unknown]

NARRATIVE: CASE EVENT DATE: 2018
